FAERS Safety Report 20489268 (Version 1)
Quarter: 2022Q1

REPORT INFORMATION
  Report Type: Spontaneous
  Country: US (occurrence: None)
  Receive Date: 20220217
  Receipt Date: 20220217
  Transmission Date: 20220423
  Serious: Yes (Hospitalization)
  Sender: FDA-Public Use
  Company Number: None

PATIENT
  Age: 59 Year
  Sex: Female
  Weight: 74.8 kg

DRUGS (10)
  1. BAMLANIVIMAB [Suspect]
     Active Substance: BAMLANIVIMAB
     Indication: COVID-19
     Dosage: FREQUENCY : ONCE;?
     Route: 042
     Dates: start: 20210125, end: 20210125
  2. Letrisole [Concomitant]
     Dates: start: 20200322
  3. ACYCLOVIR [Concomitant]
     Active Substance: ACYCLOVIR
     Dates: start: 20200322
  4. ALBUTEROL [Concomitant]
     Active Substance: ALBUTEROL
     Dates: start: 20200318
  5. LEVOTHYROXINE [Concomitant]
     Active Substance: LEVOTHYROXINE
     Dates: start: 20200322
  6. Ondanzetron ODT [Concomitant]
     Dates: start: 20210124
  7. CALCIUM CARBONATE [Concomitant]
     Active Substance: CALCIUM CARBONATE
  8. Ocular Vitamin (A/C/E/Zinc/Leutin) [Concomitant]
  9. VITAMINS [Concomitant]
     Active Substance: VITAMINS
  10. PRAVASTATIN [Concomitant]
     Active Substance: PRAVASTATIN
     Route: 042

REACTIONS (3)
  - COVID-19 pneumonia [None]
  - Pyrexia [None]
  - Urinary tract infection [None]

NARRATIVE: CASE EVENT DATE: 20210203
